FAERS Safety Report 18952146 (Version 1)
Quarter: 2021Q1

REPORT INFORMATION
  Report Type: Spontaneous
  Country: US (occurrence: US)
  Receive Date: 20210301
  Receipt Date: 20210301
  Transmission Date: 20210420
  Serious: No
  Sender: FDA-Public Use
  Company Number: US-ACCORD-215036

PATIENT
  Age: 70 Year
  Sex: Female
  Weight: 77.27 kg

DRUGS (9)
  1. PRASUGREL. [Suspect]
     Active Substance: PRASUGREL
     Indication: STENT PLACEMENT
     Dosage: STERNGTH?10MG, 30 COUNT BOTTLES, ONCE E DAY
     Route: 048
     Dates: start: 202007
  2. INSULIN [Concomitant]
     Active Substance: INSULIN NOS
  3. LOSARTAN. [Concomitant]
     Active Substance: LOSARTAN
     Dosage: STRENGTH?50MG,ONCE D AY
     Route: 048
  4. LANSOPRAZOLE. [Concomitant]
     Active Substance: LANSOPRAZOLE
     Dosage: STRENGTH?30MG,ONCE A DAY
     Route: 048
  5. METOCLOPRAMIDE. [Concomitant]
     Active Substance: METOCLOPRAMIDE
     Dosage: STRENGTH?5MG,3 TIMES DAILY
     Route: 048
  6. OXYBUTYNIN. [Concomitant]
     Active Substance: OXYBUTYNIN CHLORIDE
     Dosage: STRENGTH?10MG,ONCE A DAY
     Route: 048
  7. ATORVASTATIN [Concomitant]
     Active Substance: ATORVASTATIN
     Dosage: STRENGTH?40MG,ONCE A DAY
     Route: 048
  8. ANASTROZOLE. [Concomitant]
     Active Substance: ANASTROZOLE
     Dosage: STRENGTH?1MG,ONCE A DAY
     Route: 048
  9. FISH OIL [Concomitant]
     Active Substance: FISH OIL
     Dosage: STRENGTH?1 GM,FOUR TIMES A DAY
     Route: 048

REACTIONS (3)
  - Incorrect dose administered [Unknown]
  - Epistaxis [Recovered/Resolved]
  - Wrong technique in product usage process [Unknown]

NARRATIVE: CASE EVENT DATE: 202012
